FAERS Safety Report 16573072 (Version 1)
Quarter: 2019Q3

REPORT INFORMATION
  Report Type: Spontaneous
  Country: ES (occurrence: ES)
  Receive Date: 20190715
  Receipt Date: 20190715
  Transmission Date: 20191004
  Serious: Yes (Death, Hospitalization)
  Sender: FDA-Public Use
  Company Number: ES-FERA PHARMACEUTICALS, LLC-2019PRG00199

PATIENT
  Age: 47 Year
  Sex: Male

DRUGS (1)
  1. DEXAMETHASONE. [Suspect]
     Active Substance: DEXAMETHASONE
     Dosage: 4 MG, 2X/DAY
     Route: 065
     Dates: start: 2018

REACTIONS (7)
  - Immunosuppression [Fatal]
  - Mucormycosis [Fatal]
  - Multiple organ dysfunction syndrome [Fatal]
  - Necrotising fasciitis [Fatal]
  - Medication error [Fatal]
  - Oral pain [Unknown]
  - Hepatitis acute [Fatal]

NARRATIVE: CASE EVENT DATE: 2018
